FAERS Safety Report 8328488-4 (Version None)
Quarter: 2012Q2

REPORT INFORMATION
  Report Type: 
  Country: None (occurrence: None)
  Receive Date: 20120502
  Receipt Date: 20120427
  Transmission Date: 20120825
  Serious: Yes (Death)
  Sender: FDA-Public Use
  Company Number: US-ASTRAZENECA-2012SE27522

PATIENT
  Age: 30 Year
  Sex: Female

DRUGS (7)
  1. SEROQUEL XR [Suspect]
     Indication: BIPOLAR DISORDER
     Route: 048
  2. NEURONTIN [Concomitant]
     Route: 048
  3. SEVERAL OTHER MEDICATION [Concomitant]
  4. HALDOL [Concomitant]
  5. TRAMADOL HCL [Concomitant]
     Route: 048
  6. DEPAKOTE [Concomitant]
     Dosage: REDUCED
  7. DEPAKOTE [Concomitant]

REACTIONS (2)
  - DEATH [None]
  - OVERDOSE [None]
